FAERS Safety Report 8895597 (Version 1)
Quarter: 2012Q4

REPORT INFORMATION
  Report Type: 
  Country: US (occurrence: US)
  Receive Date: 20121107
  Receipt Date: 20121107
  Transmission Date: 20130627
  Serious: Yes (Death, Other)
  Sender: FDA-Public Use
  Company Number: US-WATSON-2012-18509

PATIENT
  Age: 71 Year
  Sex: Female

DRUGS (2)
  1. CLINDAMYCIN HYDROCHLORIDE [Suspect]
     Indication: WOUND INFECTION
     Dosage: one dose only
     Route: 048
     Dates: start: 20121016
  2. CLINDAMYCIN HYDROCHLORIDE [Suspect]
     Indication: WOUND INFECTION
     Dosage: four times a day for ten days
     Route: 048
     Dates: start: 20121016, end: 20121021

REACTIONS (4)
  - Angioedema [Recovered/Resolved]
  - Rash [Recovered/Resolved]
  - Hypotension [Recovered/Resolved]
  - Cold sweat [Recovered/Resolved]
